FAERS Safety Report 19249604 (Version 1)
Quarter: 2021Q2

REPORT INFORMATION
  Report Type: Spontaneous
  Country: US (occurrence: US)
  Receive Date: 20210512
  Receipt Date: 20210512
  Transmission Date: 20210717
  Serious: Yes (Other)
  Sender: FDA-Public Use
  Company Number: US-GLAXOSMITHKLINE-US2021GSK101186

PATIENT
  Sex: Male

DRUGS (8)
  1. RANITIDINE. [Suspect]
     Active Substance: RANITIDINE
     Indication: DYSPEPSIA
     Dosage: 75 MG, 3?4 TIMES PER WEEK
     Route: 065
     Dates: start: 200001, end: 201801
  2. RANITIDINE. [Suspect]
     Active Substance: RANITIDINE
     Dosage: 150 MG, 3?4 TIMES PER WEEK
     Route: 065
     Dates: start: 200001, end: 201801
  3. ZANTAC [Suspect]
     Active Substance: RANITIDINE HYDROCHLORIDE
     Dosage: 150 MG, 3?4 TIMES PER WEEK
     Route: 065
     Dates: start: 200001, end: 201809
  4. ZANTAC [Suspect]
     Active Substance: RANITIDINE HYDROCHLORIDE
     Dosage: 150 MG, 3?4 TIMES PER WEEK
     Route: 065
     Dates: start: 200001, end: 201809
  5. RANITIDINE. [Suspect]
     Active Substance: RANITIDINE
     Indication: DYSPEPSIA
     Dosage: 75 MG, 3?4 TIMES PER WEEK
     Route: 065
     Dates: start: 200001, end: 201801
  6. RANITIDINE. [Suspect]
     Active Substance: RANITIDINE
     Dosage: 150 MG, 3?4 TIMES PER WEEK
     Route: 065
     Dates: start: 200001, end: 201801
  7. ZANTAC [Suspect]
     Active Substance: RANITIDINE HYDROCHLORIDE
     Indication: DYSPEPSIA
     Dosage: 75 MG, 3?4 TIMES PER WEEK
     Route: 065
     Dates: start: 200001, end: 201809
  8. ZANTAC [Suspect]
     Active Substance: RANITIDINE HYDROCHLORIDE
     Indication: DYSPEPSIA
     Dosage: 75 MG, 3?4 TIMES PER WEEK
     Route: 065
     Dates: start: 200001, end: 201809

REACTIONS (1)
  - Renal cancer [Unknown]
